FAERS Safety Report 18867907 (Version 1)
Quarter: 2021Q1

REPORT INFORMATION
  Report Type: Spontaneous
  Country: CN (occurrence: CN)
  Receive Date: 20210209
  Receipt Date: 20210209
  Transmission Date: 20210420
  Serious: Yes (Hospitalization, Other)
  Sender: FDA-Public Use
  Company Number: NVSC2021CN027668

PATIENT
  Age: 25 Year
  Sex: Female

DRUGS (6)
  1. OXCARBAZEPINE. [Suspect]
     Active Substance: OXCARBAZEPINE
     Indication: EPILEPSY
     Dosage: UNK
     Route: 048
     Dates: start: 201702
  2. OXCARBAZEPINE. [Suspect]
     Active Substance: OXCARBAZEPINE
     Dosage: 1 DF, BID
     Route: 048
     Dates: start: 201710
  3. OXCARBAZEPINE. [Suspect]
     Active Substance: OXCARBAZEPINE
     Dosage: UNK
     Route: 048
     Dates: start: 202005
  4. OXCARBAZEPINE. [Suspect]
     Active Substance: OXCARBAZEPINE
     Dosage: 1.5 DF (IN THE MORNING AND 1 TABLET IN THE EVENING)
     Route: 048
  5. OXCARBAZEPINE. [Suspect]
     Active Substance: OXCARBAZEPINE
     Dosage: 2 DF, BID
     Route: 048
     Dates: start: 201711
  6. OXCARBAZEPINE. [Suspect]
     Active Substance: OXCARBAZEPINE
     Dosage: 1 DF, BID (0.5 TABLET IN THE MORNING AND 1 TABLET IN THE EVENING)
     Route: 048
     Dates: start: 202010

REACTIONS (18)
  - Tongue biting [Unknown]
  - Laryngomalacia [Unknown]
  - Dizziness [Unknown]
  - Palpitations [Unknown]
  - Loss of consciousness [Unknown]
  - Nausea [Unknown]
  - Epilepsy [Recovered/Resolved]
  - Depressed level of consciousness [Unknown]
  - Trismus [Unknown]
  - Strabismus [Unknown]
  - Normal newborn [Unknown]
  - Myoclonic epilepsy [Unknown]
  - Chest discomfort [Unknown]
  - Muscle rigidity [Unknown]
  - Maternal exposure during pregnancy [Unknown]
  - Fall [Unknown]
  - Haemorrhage [Unknown]
  - Exposure via breast milk [Unknown]

NARRATIVE: CASE EVENT DATE: 201702
